FAERS Safety Report 12094940 (Version 1)
Quarter: 2016Q1

REPORT INFORMATION
  Report Type: Spontaneous
  Country: IT (occurrence: IT)
  Receive Date: 20160219
  Receipt Date: 20160219
  Transmission Date: 20160526
  Serious: No
  Sender: FDA-Public Use
  Company Number: IT-PERNIX THERAPEUTICS-2015PT000157

PATIENT

DRUGS (1)
  1. ISOCEF [Suspect]
     Active Substance: CEFTIBUTEN
     Dosage: 400 MG, 1 DOSE UNIT, TOTAL
     Route: 048
     Dates: start: 20100401, end: 20100401

REACTIONS (2)
  - Lip oedema [Recovered/Resolved]
  - Throat tightness [Recovered/Resolved]

NARRATIVE: CASE EVENT DATE: 20100401
